FAERS Safety Report 9281866 (Version 2)
Quarter: 2013Q2

REPORT INFORMATION
  Report Type: Spontaneous
  Country: US (occurrence: US)
  Receive Date: 20130510
  Receipt Date: 20130510
  Transmission Date: 20140414
  Serious: Yes (Other)
  Sender: FDA-Public Use
  Company Number: US-ROCHE-1210388

PATIENT
  Age: 35 Year
  Sex: Female

DRUGS (5)
  1. RT-PA [Suspect]
     Indication: VENOUS THROMBOSIS
     Route: 013
  2. RT-PA [Suspect]
     Dosage: 2 MG IN 2.2 ML DISTILLED WATER TOTAL
     Route: 058
  3. ASPIRIN [Suspect]
     Indication: THROMBOSIS PROPHYLAXIS
     Route: 048
  4. HEPARIN [Suspect]
     Indication: THROMBOSIS PROPHYLAXIS
     Route: 065
  5. ALLOPURINOL [Concomitant]
     Route: 065

REACTIONS (1)
  - Thrombosis [Recovered/Resolved]
